FAERS Safety Report 5689039-6 (Version None)
Quarter: 2008Q1

REPORT INFORMATION
  Report Type: 
  Country: None (occurrence: None)
  Receive Date: 20080331
  Receipt Date: 20080318
  Transmission Date: 20080703
  Serious: Yes (Hospitalization, Other)
  Sender: FDA-Public Use
  Company Number: B0488110A

PATIENT
  Age: 55 Year
  Sex: Male
  Weight: 100 kg

DRUGS (8)
  1. AVANDAMET [Suspect]
     Dosage: 2TABS PER DAY
     Route: 048
     Dates: start: 20070201, end: 20070412
  2. DIAMICRON [Suspect]
     Dosage: 30MG THREE TIMES PER DAY
     Route: 048
     Dates: start: 20040701
  3. TAHOR [Suspect]
     Dosage: 10MG PER DAY
     Route: 048
     Dates: start: 20060301
  4. TRIATEC [Concomitant]
     Indication: DRUG USE FOR UNKNOWN INDICATION
     Dosage: 10MG PER DAY
     Route: 048
  5. VISKEN [Concomitant]
     Indication: DRUG USE FOR UNKNOWN INDICATION
     Dosage: 15MG PER DAY
     Route: 048
  6. TENSTATEN [Concomitant]
     Indication: DRUG USE FOR UNKNOWN INDICATION
     Dosage: 1TAB PER DAY
     Route: 048
  7. INIPOMP [Concomitant]
     Indication: DRUG USE FOR UNKNOWN INDICATION
     Dosage: 40MG PER DAY
     Route: 048
  8. MAXEPA [Concomitant]
     Indication: DRUG USE FOR UNKNOWN INDICATION
     Dosage: 4CAP PER DAY
     Route: 048

REACTIONS (3)
  - BLOOD CREATINE PHOSPHOKINASE INCREASED [None]
  - MIGRAINE WITH AURA [None]
  - MUSCLE SPASMS [None]
